FAERS Safety Report 8463874-3 (Version None)
Quarter: 2012Q2

REPORT INFORMATION
  Report Type: 
  Country: None (occurrence: None)
  Receive Date: 20120625
  Receipt Date: 20120622
  Transmission Date: 20120825
  Serious: Yes (Hospitalization, Other)
  Sender: FDA-Public Use
  Company Number: US-PFIZER INC-2012121469

PATIENT
  Sex: Male

DRUGS (2)
  1. DILANTIN [Suspect]
     Indication: CONVULSION
     Dosage: 400 MG, 1X/DAY
     Route: 048
  2. XANAX [Suspect]
     Dosage: UNK, 3X/DAY

REACTIONS (7)
  - CONVULSION [None]
  - MENTAL DISORDER [None]
  - DIABETES MELLITUS [None]
  - LOSS OF CONSCIOUSNESS [None]
  - MEMORY IMPAIRMENT [None]
  - HYPERTHYROIDISM [None]
  - HYPERHIDROSIS [None]
